FAERS Safety Report 25119687 (Version 4)
Quarter: 2025Q3

REPORT INFORMATION
  Report Type: Report from Study
  Country: US (occurrence: US)
  Receive Date: 20250325
  Receipt Date: 20250802
  Transmission Date: 20251020
  Serious: Yes (Death, Other)
  Sender: ALEXION PHARMACEUTICALS
  Company Number: US-AstraZeneca-CH-00832833A

PATIENT
  Age: 85 Year
  Sex: Female
  Weight: 29.478 kg

DRUGS (1)
  1. OSIMERTINIB [Suspect]
     Active Substance: OSIMERTINIB
     Dosage: 80 MILLIGRAM, QD
     Dates: start: 20241009

REACTIONS (3)
  - Cardiac failure [Fatal]
  - Renal failure [Fatal]
  - Myocardial infarction [Unknown]
